FAERS Safety Report 5644086-5 (Version None)
Quarter: 2008Q1

REPORT INFORMATION
  Report Type: 
  Country: None (occurrence: None)
  Receive Date: 20080226
  Receipt Date: 20080212
  Transmission Date: 20080703
  Serious: No
  Sender: FDA-Public Use
  Company Number: B0508963A

PATIENT
  Age: 57 Year
  Sex: Female

DRUGS (6)
  1. PAXIL [Suspect]
     Indication: DEPRESSION
     Dosage: ORAL
     Route: 048
     Dates: start: 20071224, end: 20080116
  2. LINEZOLID [Suspect]
     Indication: STAPHYLOCOCCAL INFECTION
     Dosage: 600 MG / TWICE PER DAY / ORAL
     Route: 048
     Dates: start: 20080113, end: 20080116
  3. RIFAMPICIN [Concomitant]
  4. RAMIPRIL [Concomitant]
  5. PREDNISONE [Concomitant]
  6. ESOMEPRAZOLE MAGNESIUM [Concomitant]

REACTIONS (3)
  - DRUG INTERACTION [None]
  - EXTRAPYRAMIDAL DISORDER [None]
  - SEROTONIN SYNDROME [None]
